FAERS Safety Report 5947354-2 (Version None)
Quarter: 2008Q4

REPORT INFORMATION
  Report Type: 
  Country: None (occurrence: None)
  Receive Date: 20081110
  Receipt Date: 20081030
  Transmission Date: 20090506
  Serious: Yes (Other)
  Sender: FDA-Public Use
  Company Number: AU-PFIZER INC-2008092099

PATIENT
  Age: 36 Year
  Sex: Male

DRUGS (2)
  1. CHAMPIX [Suspect]
  2. TRANDOLAPRIL [Concomitant]

REACTIONS (2)
  - ABNORMAL BEHAVIOUR [None]
  - VOMITING [None]
